FAERS Safety Report 10574055 (Version 1)
Quarter: 2014Q4

REPORT INFORMATION
  Report Type: Spontaneous
  Country: US (occurrence: US)
  Receive Date: 20141110
  Receipt Date: 20141110
  Transmission Date: 20150529
  Serious: Yes (Other)
  Sender: FDA-Public Use
  Company Number: US-ELI_LILLY_AND_COMPANY-US201411000941

PATIENT
  Age: 78 Year
  Sex: Female

DRUGS (13)
  1. LEVOTHYROXINE [Concomitant]
     Active Substance: LEVOTHYROXINE
  2. PANTOPRAZOLE [Concomitant]
     Active Substance: PANTOPRAZOLE SODIUM
  3. GABAPENTIN. [Concomitant]
     Active Substance: GABAPENTIN
  4. D3 [Concomitant]
     Active Substance: 25-HYDROXYCHOLECALCIFEROL, 5-TRANS-
  5. CHONDROITIN [Concomitant]
     Active Substance: CHONDROITIN
  6. FENTANYL. [Concomitant]
     Active Substance: FENTANYL
  7. COQ10 [Concomitant]
     Active Substance: UBIDECARENONE
  8. FISH OIL [Concomitant]
     Active Substance: FISH OIL
  9. AMLODIPINE [Concomitant]
     Active Substance: AMLODIPINE BESYLATE
  10. ASPIRIN. [Concomitant]
     Active Substance: ASPIRIN
     Dosage: 81 MG, UNK
  11. LYRICA [Concomitant]
     Active Substance: PREGABALIN
     Indication: PERIPHERAL SWELLING
  12. VALSARTAN AND HYDROCHLOROTHIAZIDE [Concomitant]
     Active Substance: HYDROCHLOROTHIAZIDE\VALSARTAN
  13. FORTEO [Suspect]
     Active Substance: TERIPARATIDE
     Indication: PRODUCT USED FOR UNKNOWN INDICATION
     Dosage: UNK, QD
     Route: 065
     Dates: start: 20140210

REACTIONS (4)
  - Transient ischaemic attack [Unknown]
  - Hypoaesthesia [Unknown]
  - Paraesthesia [Unknown]
  - Coordination abnormal [Unknown]

NARRATIVE: CASE EVENT DATE: 20140215
